FAERS Safety Report 15410175 (Version 1)
Quarter: 2018Q3

REPORT INFORMATION
  Report Type: Spontaneous
  Country: US (occurrence: US)
  Receive Date: 20180913
  Receipt Date: 20180913
  Transmission Date: 20181010
  Serious: Yes (Death)
  Sender: FDA-Public Use
  Company Number: None

PATIENT

DRUGS (7)
  1. SODIUM BICARB [Concomitant]
     Active Substance: SODIUM BICARBONATE
  2. D [Concomitant]
  3. PREDNISONE. [Concomitant]
     Active Substance: PREDNISONE
  4. TRADJENTA LINALIPTIN [Concomitant]
  5. VITAMINS [Concomitant]
     Active Substance: VITAMINS
  6. IRON [Concomitant]
     Active Substance: IRON
  7. HYDRALAZIN 100MG 3XDAY [Suspect]
     Active Substance: HYDRALAZINE HYDROCHLORIDE
     Indication: HYPERTENSION
     Dosage: ?          QUANTITY:3 DF DOSAGE FORM;?
     Route: 048
     Dates: start: 20140608, end: 2018

REACTIONS (4)
  - Renal disorder [None]
  - Pulmonary oedema [None]
  - Lupus-like syndrome [None]
  - Haemoptysis [None]
